FAERS Safety Report 10151264 (Version 1)
Quarter: 2014Q2

REPORT INFORMATION
  Report Type: Spontaneous
  Country: US (occurrence: BR)
  Receive Date: 20140504
  Receipt Date: 20140504
  Transmission Date: 20141212
  Serious: Yes (Life-Threatening, Hospitalization, Other)
  Sender: FDA-Public Use
  Company Number: 2014SP002380

PATIENT
  Sex: Female

DRUGS (9)
  1. METHOTREXATE [Suspect]
     Indication: RHEUMATOID ARTHRITIS
     Route: 048
  2. CORTISONE [Suspect]
     Indication: RHEUMATOID ARTHRITIS
     Route: 048
  3. CORTISONE [Suspect]
     Indication: SYSTEMIC LUPUS ERYTHEMATOSUS
     Route: 048
  4. CORTISONE [Suspect]
     Route: 048
  5. CHLOROQUINE [Suspect]
     Indication: RHEUMATOID ARTHRITIS
  6. HYDROXYCHLOROQUINE SULFATE [Suspect]
     Indication: RHEUMATOID ARTHRITIS
  7. STRONTIUM RANELATE [Concomitant]
  8. ACICLOVIR [Concomitant]
  9. LEFLUNOMIDE [Concomitant]

REACTIONS (23)
  - Terminal state [Recovered/Resolved]
  - Cerebrovascular accident [Recovered/Resolved]
  - Infarction [Recovered/Resolved]
  - Nephritis [Recovered/Resolved]
  - Protein urine present [Recovered/Resolved]
  - Blood urine present [Recovered/Resolved]
  - Osteonecrosis [Recovered/Resolved]
  - Abasia [Recovered/Resolved]
  - Arthralgia [Recovered/Resolved]
  - Pain [Recovered/Resolved]
  - Immunosuppression [Recovered/Resolved]
  - Leukopenia [Recovered/Resolved]
  - Anaemia [Recovered/Resolved]
  - Dyspnoea [Recovered/Resolved]
  - Weight increased [Recovered/Resolved]
  - Alopecia [Recovered/Resolved]
  - Tooth loss [Recovered/Resolved]
  - Antinuclear antibody positive [Recovered/Resolved]
  - Withdrawal syndrome [Recovered/Resolved]
  - Asthenia [Recovered/Resolved]
  - Myopia [Recovered/Resolved]
  - Visual acuity reduced [Recovered/Resolved]
  - Hypoaesthesia [Recovered/Resolved]
